FAERS Safety Report 25406630 (Version 1)
Quarter: 2025Q2

REPORT INFORMATION
  Report Type: Spontaneous
  Country: US (occurrence: US)
  Receive Date: 20250606
  Receipt Date: 20250606
  Transmission Date: 20250716
  Serious: No
  Sender: ALKERMES
  Company Number: US-ALKERMES INC.-ALK-2025-001415

PATIENT
  Sex: Male

DRUGS (1)
  1. VIVITROL [Suspect]
     Active Substance: NALTREXONE
     Indication: Alcoholism
     Route: 030

REACTIONS (2)
  - Drug ineffective [Unknown]
  - Alcohol use [Unknown]
